FAERS Safety Report 20018810 (Version 1)
Quarter: 2021Q4

REPORT INFORMATION
  Report Type: Spontaneous
  Country: US (occurrence: US)
  Receive Date: 20211101
  Receipt Date: 20211101
  Transmission Date: 20220303
  Serious: No
  Sender: FDA-Public Use
  Company Number: US-AUROBINDO-AUR-APL-2021-035796

PATIENT
  Sex: Male
  Weight: 81.6 kg

DRUGS (3)
  1. METOPROLOL TARTRATE [Suspect]
     Active Substance: METOPROLOL TARTRATE
     Indication: Aortic valve replacement
     Dosage: 2 DOSAGE FORM, DAILY (ONE IN THE MORNING AND ONE AT NIGHT)
     Route: 065
     Dates: end: 20210727
  2. ATORVASTATIN [Concomitant]
     Active Substance: ATORVASTATIN
     Indication: Product used for unknown indication
     Dosage: UNK
     Route: 065
  3. PANTOPRAZOLE [Concomitant]
     Active Substance: PANTOPRAZOLE
     Indication: Product used for unknown indication
     Dosage: 20 MILLIGRAM, ONCE A DAY
     Route: 065

REACTIONS (5)
  - Anxiety [Unknown]
  - Muscle tightness [Unknown]
  - Chest discomfort [Unknown]
  - Heart rate abnormal [Unknown]
  - Dizziness [Unknown]
